FAERS Safety Report 8297684 (Version 2)
Quarter: 2014Q2

REPORT INFORMATION
  Report Type: Spontaneous
  Country: US (occurrence: US)
  Receive Date: 20111219
  Receipt Date: 20140415
  Transmission Date: 20141212
  Serious: Yes (Other)
  Sender: FDA-Public Use
  Company Number: US-BAYER-2011-118027

PATIENT
  Age: 28 Year
  Sex: Female

DRUGS (9)
  1. YAZ [Suspect]
     Dosage: UNK
     Route: 048
     Dates: start: 2007, end: 2009
  2. FLUOXETINE [Concomitant]
     Dosage: 10 MG, TAKE THREE TABLETS VERY DAY
     Route: 048
     Dates: start: 20080311
  3. WELLBUTRIN [Concomitant]
  4. TESTOSTERONE [Concomitant]
     Dosage: 2% Q HS (EVERY NIGHT)
  5. VIVELLE [ESTRADIOL] [Concomitant]
  6. ESTRADIOL [Concomitant]
  7. SYNTEST [Concomitant]
  8. ESTRACE VAGINAL [Concomitant]
  9. PROMETRIUM [Concomitant]

REACTIONS (5)
  - Gallbladder disorder [None]
  - Post cholecystectomy syndrome [None]
  - Gallbladder pain [None]
  - Injury [None]
  - Anxiety [None]
